FAERS Safety Report 24586627 (Version 1)
Quarter: 2024Q4

REPORT INFORMATION
  Report Type: Spontaneous
  Country: US (occurrence: US)
  Receive Date: 20241107
  Receipt Date: 20241107
  Transmission Date: 20250115
  Serious: No
  Sender: NOVARTIS
  Company Number: US-002147023-NVSC2024US215298

PATIENT
  Sex: Female

DRUGS (1)
  1. LEQVIO [Suspect]
     Active Substance: INCLISIRAN SODIUM
     Indication: Low density lipoprotein decreased
     Dosage: UNK, 2X PER YEAR
     Route: 058
     Dates: start: 20241018

REACTIONS (2)
  - Rash [Recovering/Resolving]
  - Lip swelling [Recovering/Resolving]

NARRATIVE: CASE EVENT DATE: 20241018
